FAERS Safety Report 4785587-1 (Version None)
Quarter: 2005Q4

REPORT INFORMATION
  Report Type: 
  Country: None (occurrence: None)
  Receive Date: 20051003
  Receipt Date: 20050926
  Transmission Date: 20060501
  Serious: Yes (Hospitalization)
  Sender: FDA-Public Use
  Company Number: SK-GLAXOSMITHKLINE-B0395439A

PATIENT
  Age: 58 Year
  Sex: Female

DRUGS (2)
  1. CEFUROXIME AXETIL [Suspect]
     Indication: ERYSIPELAS
     Dosage: 500MG PER DAY
     Route: 048
  2. BISOPROLOL [Concomitant]
     Indication: ESSENTIAL HYPERTENSION
     Dosage: 2.5MG PER DAY
     Route: 048

REACTIONS (3)
  - DYSPNOEA EXACERBATED [None]
  - SYNCOPE [None]
  - URTICARIA GENERALISED [None]
